FAERS Safety Report 25598499 (Version 1)
Quarter: 2025Q3

REPORT INFORMATION
  Report Type: Spontaneous
  Country: US (occurrence: US)
  Receive Date: 20250723
  Receipt Date: 20250723
  Transmission Date: 20251021
  Serious: Yes (Death, Other)
  Sender: ORGANON
  Company Number: US-ORGANON-O2507USA001769

PATIENT
  Age: 49 Year
  Sex: Male

DRUGS (1)
  1. TOFIDENCE [Suspect]
     Active Substance: TOCILIZUMAB-BAVI
     Indication: Cytokine release syndrome

REACTIONS (2)
  - Immune effector cell-associated neurotoxicity syndrome [Fatal]
  - Product use in unapproved indication [Unknown]
